FAERS Safety Report 7047044-1 (Version None)
Quarter: 2010Q4

REPORT INFORMATION
  Report Type: 
  Country: None (occurrence: None)
  Receive Date: 20101015
  Receipt Date: 20101006
  Transmission Date: 20110411
  Serious: Yes (Hospitalization)
  Sender: FDA-Public Use
  Company Number: FR-JNJFOC-20100400415

PATIENT
  Age: 48 Year
  Sex: Female
  Weight: 46 kg

DRUGS (11)
  1. REMICADE [Suspect]
     Indication: CROHN'S DISEASE
     Route: 042
  2. REMICADE [Suspect]
     Route: 042
  3. REMICADE [Suspect]
     Route: 042
  4. REMICADE [Suspect]
     Dosage: 13TH INFUSION
     Route: 042
  5. TIAPRIDAL [Suspect]
     Indication: DEPRESSION
  6. SKENAN [Suspect]
     Indication: ABDOMINAL PAIN
  7. VALIUM [Concomitant]
     Indication: DEPRESSION
  8. NORSET [Concomitant]
     Indication: DEPRESSION
  9. EQUANIL [Concomitant]
  10. IMODIUM [Concomitant]
     Indication: DIARRHOEA
  11. PARACETAMOL [Concomitant]
     Indication: HEADACHE
     Dosage: 1G-3G QD

REACTIONS (2)
  - GASTROINTESTINAL NECROSIS [None]
  - VASCULITIS [None]
